FAERS Safety Report 12611353 (Version 1)
Quarter: 2016Q3

REPORT INFORMATION
  Report Type: Spontaneous
  Country: US (occurrence: US)
  Receive Date: 20160801
  Receipt Date: 20160801
  Transmission Date: 20161109
  Serious: Yes (Other)
  Sender: FDA-Public Use
  Company Number: US-FRESENIUS KABI-FK201604905

PATIENT
  Age: 62 Year
  Sex: Male
  Weight: 87.54 kg

DRUGS (5)
  1. LISINOPRIL. [Concomitant]
     Active Substance: LISINOPRIL
     Indication: HYPERTENSION
     Route: 065
  2. BUPIVACAINE HOSPIRA [Suspect]
     Active Substance: BUPIVACAINE
     Indication: OSTEOARTHRITIS
     Route: 014
     Dates: start: 20160721
  3. LIDOCAINE HOSPIRA [Suspect]
     Active Substance: LIDOCAINE
     Indication: OSTEOARTHRITIS
     Route: 014
     Dates: start: 20160721
  4. DEPO-MEDROL [Suspect]
     Active Substance: METHYLPREDNISOLONE ACETATE
     Indication: OSTEOARTHRITIS
     Route: 014
     Dates: start: 20160721
  5. DEXAMETHASONE SODIUM PHOSPHATE INJECTION, USP [Suspect]
     Active Substance: DEXAMETHASONE SODIUM PHOSPHATE
     Indication: OSTEOARTHRITIS
     Route: 014
     Dates: start: 20160721

REACTIONS (3)
  - Arthralgia [Not Recovered/Not Resolved]
  - Arthritis infective [Unknown]
  - Joint swelling [Not Recovered/Not Resolved]

NARRATIVE: CASE EVENT DATE: 20160722
